FAERS Safety Report 10206790 (Version 1)
Quarter: 2014Q2

REPORT INFORMATION
  Report Type: Spontaneous
  Country: US (occurrence: None)
  Receive Date: 20140528
  Receipt Date: 20140528
  Transmission Date: 20141212
  Serious: Yes (Life-Threatening, Other)
  Sender: FDA-Public Use
  Company Number: None

PATIENT
  Age: 2 Month
  Sex: 0

DRUGS (1)
  1. HYDROCHLOROTHIAZIDE [Suspect]
     Indication: PERIPHERAL SWELLING
     Route: 048
     Dates: start: 20140415, end: 20140428

REACTIONS (6)
  - Hypersensitivity [None]
  - Peripheral swelling [None]
  - Arthralgia [None]
  - Erythema [None]
  - Pruritus [None]
  - Skin irritation [None]
